FAERS Safety Report 16688794 (Version 2)
Quarter: 2019Q3

REPORT INFORMATION
  Report Type: Spontaneous
  Country: IT (occurrence: IT)
  Receive Date: 20190809
  Receipt Date: 20190919
  Transmission Date: 20191004
  Serious: Yes (Hospitalization, Other)
  Sender: FDA-Public Use
  Company Number: IT-PFIZER INC-2019338706

PATIENT

DRUGS (16)
  1. MUSCORIL [Suspect]
     Active Substance: THIOCOLCHICOSIDE
     Indication: BACK PAIN
  2. ROCEFIN [Suspect]
     Active Substance: CEFTRIAXONE SODIUM
     Dosage: UNK
  3. EFFERALGAN [Suspect]
     Active Substance: ACETAMINOPHEN
     Dosage: UNK
  4. LYRICA [Suspect]
     Active Substance: PREGABALIN
     Dosage: UNK, DAILY (2)
  5. VOLTAREN [Suspect]
     Active Substance: DICLOFENAC SODIUM
     Indication: SCIATICA
     Dosage: UNK
  6. VOLTAREN [Suspect]
     Active Substance: DICLOFENAC SODIUM
     Indication: BACK PAIN
  7. TORADOL [Suspect]
     Active Substance: KETOROLAC TROMETHAMINE
     Indication: SCIATICA
     Dosage: UNK
  8. TACHIPIRINA [Suspect]
     Active Substance: ACETAMINOPHEN
     Indication: BACK PAIN
     Dosage: UNK
  9. TORADOL [Suspect]
     Active Substance: KETOROLAC TROMETHAMINE
     Indication: BACK PAIN
  10. TACHIDOL [Suspect]
     Active Substance: ACETAMINOPHEN\CODEINE PHOSPHATE
     Dosage: UNK, DAILY (2)
  11. SIRDALUD [Suspect]
     Active Substance: TIZANIDINE
     Indication: SCIATICA
     Dosage: UNK
  12. SIRDALUD [Suspect]
     Active Substance: TIZANIDINE
     Indication: BACK PAIN
  13. TACHIPIRINA [Suspect]
     Active Substance: ACETAMINOPHEN
     Indication: SCIATICA
  14. SOLDESAM [Suspect]
     Active Substance: DEXAMETHASONE
     Indication: SCIATICA
  15. MUSCORIL [Suspect]
     Active Substance: THIOCOLCHICOSIDE
     Indication: SCIATICA
     Dosage: UNK
  16. SOLDESAM [Suspect]
     Active Substance: DEXAMETHASONE
     Indication: BACK PAIN
     Dosage: UNK

REACTIONS (14)
  - Drug ineffective [Unknown]
  - Myalgia [Unknown]
  - Asthenia [Unknown]
  - Peripheral swelling [Unknown]
  - Paraesthesia [Unknown]
  - Hernia [Unknown]
  - Pain in extremity [Unknown]
  - Musculoskeletal pain [Recovered/Resolved]
  - Disease recurrence [Unknown]
  - Gait disturbance [Unknown]
  - Discomfort [Unknown]
  - Tremor [Unknown]
  - Protein deficiency [Unknown]
  - Pain [Unknown]
